FAERS Safety Report 7125659-X (Version None)
Quarter: 2010Q4

REPORT INFORMATION
  Report Type: 
  Country: None (occurrence: None)
  Receive Date: 20101129
  Receipt Date: 20101116
  Transmission Date: 20110411
  Serious: Yes (Hospitalization, Disabling)
  Sender: FDA-Public Use
  Company Number: A0774390A

PATIENT
  Age: 65 Year
  Sex: Male
  Weight: 98.2 kg

DRUGS (12)
  1. AVANDIA [Suspect]
     Dosage: 4MG PER DAY
     Route: 048
     Dates: start: 20060927, end: 20070901
  2. GLUCOTROL [Concomitant]
  3. TOPROL-XL [Concomitant]
  4. TRICOR [Concomitant]
  5. AMITRIPTYLINE [Concomitant]
  6. ZOCOR [Concomitant]
  7. LEVAQUIN [Concomitant]
  8. SALSALATE [Concomitant]
  9. PRILOSEC [Concomitant]
  10. METFORMIN [Concomitant]
  11. ATENOLOL [Concomitant]
     Dates: end: 20070301
  12. HYDROCHLOROTHIAZIDE [Concomitant]
     Dates: end: 20070301

REACTIONS (5)
  - ACUTE MYOCARDIAL INFARCTION [None]
  - ARRHYTHMIA [None]
  - ARTERIOSCLEROSIS [None]
  - CARDIAC FAILURE CONGESTIVE [None]
  - CARDIOMYOPATHY [None]
